FAERS Safety Report 10218405 (Version 1)
Quarter: 2014Q2

REPORT INFORMATION
  Report Type: Spontaneous
  Country: US (occurrence: US)
  Receive Date: 20140605
  Receipt Date: 20140605
  Transmission Date: 20141212
  Serious: Yes (Hospitalization)
  Sender: FDA-Public Use
  Company Number: US-JNJFOC-20140518445

PATIENT
  Age: 78 Year
  Sex: Female
  Weight: 81.65 kg

DRUGS (18)
  1. REMICADE [Suspect]
     Indication: RHEUMATOID ARTHRITIS
     Route: 042
     Dates: start: 20131119, end: 20131119
  2. REMICADE [Suspect]
     Indication: RHEUMATOID ARTHRITIS
     Route: 042
     Dates: start: 20110104
  3. REMICADE [Suspect]
     Indication: RHEUMATOID ARTHRITIS
     Route: 042
     Dates: start: 20130827
  4. REMICADE [Suspect]
     Indication: RHEUMATOID ARTHRITIS
     Route: 042
     Dates: start: 20131008
  5. REMICADE [Suspect]
     Indication: RHEUMATOID ARTHRITIS
     Route: 042
     Dates: start: 20130719
  6. PRILOSEC [Concomitant]
     Indication: GASTROOESOPHAGEAL REFLUX DISEASE
     Route: 048
  7. LASIX [Concomitant]
     Indication: FLUID RETENTION
     Route: 048
  8. SPIRONOLACTONE [Concomitant]
     Indication: FLUID RETENTION
     Route: 048
  9. DIOVAN [Concomitant]
     Indication: HYPERTENSION
     Route: 048
  10. OCUVITE NOS [Concomitant]
     Route: 048
  11. IRON SULFATE [Concomitant]
     Indication: RESTLESS LEGS SYNDROME
     Route: 048
  12. REQUIP [Concomitant]
     Indication: RESTLESS LEGS SYNDROME
     Route: 048
  13. NEURONTIN [Concomitant]
     Indication: NEUROPATHY PERIPHERAL
     Dosage: 1 TABLET AT 7 AM, 1 AT 2PM AND 2 AT 10PM
     Route: 048
  14. PLAVIX [Concomitant]
     Dosage: 1 TABLET AT 7 AM, 1 AT 2PM AND 2 AT 10PM
     Route: 048
     Dates: start: 20130128, end: 201404
  15. ASPIRIN [Concomitant]
     Dosage: 1 TABLET AT 7 AM, 1 AT 2PM AND 2 AT 10PM
     Route: 048
  16. VITAMIN B12 [Concomitant]
     Dosage: 1 TABLET AT 7 AM, 1 AT 2PM AND 2 AT 10PM
     Route: 048
     Dates: start: 2009
  17. CALCIUM [Concomitant]
     Indication: OSTEOPENIA
     Dosage: 1 TABLET AT 7 AM, 1 AT 2PM AND 2 AT 10PM
     Route: 048
  18. KEPPRA [Concomitant]
     Indication: CONVULSION
     Dosage: 1 TABLET AT 7 AM, 1 AT 2PM AND 2 AT 10PM
     Route: 048
     Dates: start: 20130716

REACTIONS (4)
  - Generalised tonic-clonic seizure [Recovered/Resolved]
  - Infusion related reaction [Recovered/Resolved]
  - Psychosomatic disease [Recovered/Resolved]
  - Rheumatoid arthritis [Not Recovered/Not Resolved]
